FAERS Safety Report 10048313 (Version 2)
Quarter: 2014Q2

REPORT INFORMATION
  Report Type: Spontaneous
  Country: US (occurrence: US)
  Receive Date: 20140331
  Receipt Date: 20140508
  Transmission Date: 20141212
  Serious: Yes (Death)
  Sender: FDA-Public Use
  Company Number: US-GLAXOSMITHKLINE-A1066500A

PATIENT
  Age: 33 Year
  Sex: Female

DRUGS (4)
  1. LAMICTAL [Suspect]
     Indication: CONVULSION
     Dosage: 300MG TWICE PER DAY
     Route: 048
     Dates: start: 2010
  2. KEPPRA [Suspect]
     Indication: CONVULSION
     Route: 065
  3. TRILEPTAL [Suspect]
     Indication: CONVULSION
     Route: 065
  4. VITAMINS [Concomitant]

REACTIONS (2)
  - Road traffic accident [Fatal]
  - Head injury [Fatal]
